FAERS Safety Report 17587536 (Version 2)
Quarter: 2020Q3

REPORT INFORMATION
  Report Type: Spontaneous
  Country: US (occurrence: US)
  Receive Date: 20200326
  Receipt Date: 20200702
  Transmission Date: 20201102
  Serious: No
  Sender: FDA-Public Use
  Company Number: US-BAUSCH-BL-2020-008710

PATIENT
  Age: 60 Year
  Sex: Male
  Weight: 64.47 kg

DRUGS (1)
  1. MOVIPREP [Suspect]
     Active Substance: ASCORBIC ACID\POLYETHYLENE GLYCOL 3350\POTASSIUM CHLORIDE\SODIUM ASCORBATE\SODIUM CHLORIDE\SODIUM SULFATE
     Indication: BOWEL PREPARATION
     Dosage: TOOK HALF SOLUTION IN THE EVENING ON 18/MAR/2020 AND THE OTHER HALF IN THE MORNING ON 19/MAR/2020.
     Route: 048
     Dates: start: 20200318, end: 20200319

REACTIONS (2)
  - Temporomandibular joint syndrome [Recovered/Resolved]
  - Swelling face [Recovered/Resolved]

NARRATIVE: CASE EVENT DATE: 20200318
